FAERS Safety Report 20087685 (Version 1)
Quarter: 2021Q4

REPORT INFORMATION
  Report Type: Spontaneous
  Country: US (occurrence: None)
  Receive Date: 20211118
  Receipt Date: 20211118
  Transmission Date: 20220303
  Serious: Yes (Hospitalization)
  Sender: FDA-Public Use
  Company Number: None

PATIENT
  Age: 10 Year
  Sex: Male
  Weight: 27.9 kg

DRUGS (2)
  1. LAMOTRIGINE [Suspect]
     Active Substance: LAMOTRIGINE
     Indication: Seizure
     Dosage: FREQUENCY : DAILY;?
     Route: 048
     Dates: start: 20211021, end: 20211112
  2. OXCARBAZEPINE [Concomitant]
     Active Substance: OXCARBAZEPINE
     Dates: start: 20210315, end: 20211102

REACTIONS (2)
  - Stevens-Johnson syndrome [None]
  - Conjunctivitis [None]

NARRATIVE: CASE EVENT DATE: 20211112
